FAERS Safety Report 20381790 (Version 1)
Quarter: 2022Q1

REPORT INFORMATION
  Report Type: Spontaneous
  Country: CN (occurrence: CN)
  Receive Date: 20220127
  Receipt Date: 20220127
  Transmission Date: 20220423
  Serious: Yes (Other)
  Sender: FDA-Public Use
  Company Number: CN-BAXTER-2022BAX001747

PATIENT
  Age: 63 Year
  Sex: Female
  Weight: 52 kg

DRUGS (9)
  1. CYCLOPHOSPHAMIDE [Suspect]
     Active Substance: CYCLOPHOSPHAMIDE
     Indication: Breast cancer female
     Dosage: 1 TO 5 TH CYCLE CHEMOTHERAPY
     Route: 041
  2. CYCLOPHOSPHAMIDE [Suspect]
     Active Substance: CYCLOPHOSPHAMIDE
     Dosage: 6 TH CYCLE CHEMOTHERAPY
     Route: 041
     Dates: start: 20220107, end: 20220107
  3. CYCLOPHOSPHAMIDE [Suspect]
     Active Substance: CYCLOPHOSPHAMIDE
     Dosage: DOSE REINTRODUCED
     Route: 041
  4. DOCETAXEL [Suspect]
     Active Substance: DOCETAXEL
     Indication: Breast cancer female
     Dosage: 1 TO 5 TH CYCLE OF CHEMOTHERAPY
     Route: 041
  5. DOCETAXEL [Suspect]
     Active Substance: DOCETAXEL
     Dosage: 6 TH CYCLE OF CHEMOTHERAPY
     Route: 041
     Dates: start: 20220107, end: 20220107
  6. DOCETAXEL [Suspect]
     Active Substance: DOCETAXEL
     Dosage: DOSE REINTRODUCED
     Route: 041
  7. DOXORUBICIN HYDROCHLORIDE [Suspect]
     Active Substance: DOXORUBICIN HYDROCHLORIDE
     Indication: Breast cancer female
     Dosage: 1 TO 5 TH CYCLE OF CHEMOTHERAPY
     Route: 041
  8. DOXORUBICIN HYDROCHLORIDE [Suspect]
     Active Substance: DOXORUBICIN HYDROCHLORIDE
     Dosage: 6 TH CYCLE OF CHEMOTHERAPY
     Route: 041
     Dates: start: 20220107, end: 20220107
  9. DOXORUBICIN HYDROCHLORIDE [Suspect]
     Active Substance: DOXORUBICIN HYDROCHLORIDE
     Dosage: DOSE REINTRODUCED
     Route: 041

REACTIONS (5)
  - Glucose urine present [Recovering/Resolving]
  - Myelosuppression [Recovering/Resolving]
  - Pyrexia [Recovering/Resolving]
  - Blood glucose increased [Recovering/Resolving]
  - Asthenia [Unknown]

NARRATIVE: CASE EVENT DATE: 20220114
